FAERS Safety Report 11832946 (Version 2)
Quarter: 2015Q4

REPORT INFORMATION
  Report Type: Report from Study
  Country: FR (occurrence: FR)
  Receive Date: 20151214
  Receipt Date: 20151217
  Transmission Date: 20160305
  Serious: Yes (Death, Other)
  Sender: FDA-Public Use
  Company Number: FR-SEATTLE GENETICS-2015SGN02002

PATIENT

DRUGS (1)
  1. BRENTUXIMAB VEDOTIN [Suspect]
     Active Substance: BRENTUXIMAB VEDOTIN
     Indication: HODGKIN^S DISEASE
     Dosage: 137 MG, UNK
     Route: 042
     Dates: start: 20150629, end: 20150810

REACTIONS (3)
  - Hodgkin^s disease [Fatal]
  - Weight decreased [Unknown]
  - Drug effect incomplete [Unknown]

NARRATIVE: CASE EVENT DATE: 201507
